FAERS Safety Report 21945371 (Version 2)
Quarter: 2023Q1

REPORT INFORMATION
  Report Type: Report from Study
  Country: RU (occurrence: RU)
  Receive Date: 20230202
  Receipt Date: 20230209
  Transmission Date: 20230417
  Serious: Yes (Hospitalization)
  Sender: FDA-Public Use
  Company Number: RU-TAKEDA-2023TUS011079

PATIENT
  Age: 11 Year
  Sex: Male
  Weight: 39 kg

DRUGS (3)
  1. ADVATE [Suspect]
     Active Substance: ANTIHEMOPHILIC FACTOR, HUMAN RECOMBINANT
     Indication: Haemostasis
     Dosage: 50 INTERNATIONAL UNIT/KILOGRAM, QOD
     Route: 042
     Dates: start: 202204
  2. ADVATE [Suspect]
     Active Substance: ANTIHEMOPHILIC FACTOR, HUMAN RECOMBINANT
     Indication: Haemostasis
     Dosage: 50 INTERNATIONAL UNIT/KILOGRAM, QOD
     Route: 042
     Dates: start: 202204
  3. ADVATE [Suspect]
     Active Substance: ANTIHEMOPHILIC FACTOR, HUMAN RECOMBINANT
     Indication: Haemostasis
     Dosage: 50 INTERNATIONAL UNIT/KILOGRAM, QOD
     Route: 042
     Dates: start: 202204

REACTIONS (2)
  - Ingrowing nail [Recovered/Resolved]
  - Hyperaemia [Recovered/Resolved]

NARRATIVE: CASE EVENT DATE: 20230123
